FAERS Safety Report 21359551 (Version 1)
Quarter: 2022Q3

REPORT INFORMATION
  Report Type: Spontaneous
  Country: US (occurrence: US)
  Receive Date: 20220921
  Receipt Date: 20220921
  Transmission Date: 20221027
  Serious: Yes (Other)
  Sender: FDA-Public Use
  Company Number: US-JAZZ-2022-US-029710

PATIENT
  Age: 6 Year
  Sex: Female

DRUGS (1)
  1. VYXEOS [Suspect]
     Active Substance: CYTARABINE\DAUNORUBICIN
     Indication: Acute myeloid leukaemia
     Dosage: UNK

REACTIONS (7)
  - Cardiomyopathy [Unknown]
  - Myelosuppression [Unknown]
  - Cytopenia [Unknown]
  - Thrombocytopenia [Unknown]
  - Drug eruption [Unknown]
  - Stomatitis [Unknown]
  - Pyrexia [Unknown]
